FAERS Safety Report 24122130 (Version 1)
Quarter: 2024Q3

REPORT INFORMATION
  Report Type: Spontaneous
  Country: US (occurrence: US)
  Receive Date: 20240722
  Receipt Date: 20240722
  Transmission Date: 20241016
  Serious: No
  Sender: JOHNSON AND JOHNSON
  Company Number: US-JNJFOC-20240739059

PATIENT
  Age: 67 Year
  Sex: Female

DRUGS (1)
  1. REMICADE [Suspect]
     Active Substance: INFLIXIMAB
     Indication: Colitis ulcerative
     Dosage: PATIENT RECEIVED 9ML OF THE INFUSION
     Route: 041

REACTIONS (4)
  - Flushing [Unknown]
  - Flank pain [Unknown]
  - Infusion related reaction [Unknown]
  - Illness [Unknown]

NARRATIVE: CASE EVENT DATE: 20240715
